FAERS Safety Report 15093156 (Version 2)
Quarter: 2018Q3

REPORT INFORMATION
  Report Type: Spontaneous
  Country: US (occurrence: US)
  Receive Date: 20180629
  Receipt Date: 20180907
  Transmission Date: 20181010
  Serious: Yes (Hospitalization, Other)
  Sender: FDA-Public Use
  Company Number: US-BRISTOL-MYERS SQUIBB COMPANY-BMS-2018-060299

PATIENT
  Age: 73 Year
  Sex: Male

DRUGS (16)
  1. HYDROXYUREA. [Concomitant]
     Active Substance: HYDROXYUREA
     Indication: PRODUCT USED FOR UNKNOWN INDICATION
     Dosage: 500 MG, BID
     Route: 048
     Dates: start: 20180621, end: 20180622
  2. BENEFIBER                          /00677201/ [Concomitant]
     Active Substance: ICODEXTRIN
     Indication: ADVERSE EVENT
     Dosage: 4 G, BID
     Route: 048
     Dates: start: 20180625, end: 20180629
  3. ASPIRIN                            /00002701/ [Concomitant]
     Active Substance: ASPIRIN
     Indication: CARDIOVASCULAR DISORDER
     Dosage: 81 MG, UNK
     Route: 048
     Dates: start: 20180613, end: 20180625
  4. HYDROXYUREA. [Concomitant]
     Active Substance: HYDROXYUREA
     Indication: PRODUCT USED FOR UNKNOWN INDICATION
     Dosage: 500 MG, QD
     Route: 048
     Dates: start: 20180622, end: 20180623
  5. METOPROLOL                         /00376902/ [Concomitant]
     Active Substance: METOPROLOL TARTRATE
     Indication: CARDIOVASCULAR DISORDER
     Dosage: 100 MG, BID
     Route: 048
     Dates: start: 20180613, end: 20180629
  6. APIXABAN [Concomitant]
     Active Substance: APIXABAN
     Indication: THROMBOSIS PROPHYLAXIS
     Dosage: 5 MG, BID
     Route: 048
     Dates: start: 20180613, end: 20180625
  7. NICOTINE. [Concomitant]
     Active Substance: NICOTINE
     Indication: PRODUCT USED FOR UNKNOWN INDICATION
     Dosage: 21 MG, QD
     Route: 062
     Dates: start: 20180531, end: 20180629
  8. POLYETHYLENE GLYCOL [Concomitant]
     Active Substance: POLYETHYLENE GLYCOLS
     Indication: LAXATIVE SUPPORTIVE CARE
     Dosage: 1 DF, QD
     Route: 048
     Dates: start: 20180531, end: 20180629
  9. HYDROXYUREA. [Concomitant]
     Active Substance: HYDROXYUREA
     Indication: CHRONIC MYELOID LEUKAEMIA
     Dosage: 1000 MG, UNK
     Route: 048
     Dates: start: 20180613, end: 20180621
  10. ENOXAPARIN [Concomitant]
     Active Substance: ENOXAPARIN
     Indication: THROMBOSIS PROPHYLAXIS
     Dosage: 40 MG, QD
     Route: 058
     Dates: start: 20180625, end: 20180629
  11. SPRYCEL [Suspect]
     Active Substance: DASATINIB
     Indication: CHRONIC MYELOID LEUKAEMIA
     Dosage: 140 MG, UNK
     Route: 048
     Dates: start: 20180619, end: 20180623
  12. ATORVASTATIN [Concomitant]
     Active Substance: ATORVASTATIN
     Indication: HYPERLIPIDAEMIA
     Dosage: 10 MG, QD
     Route: 048
     Dates: start: 20180613, end: 20180629
  13. SPRYCEL [Suspect]
     Active Substance: DASATINIB
     Indication: PRODUCT USED FOR UNKNOWN INDICATION
     Dosage: 140 MG, UNK
     Route: 048
     Dates: start: 20180625, end: 20180629
  14. ALLOPURINOL. [Concomitant]
     Active Substance: ALLOPURINOL
     Indication: HYPERURICAEMIA
     Dosage: 100 MG, BID
     Route: 048
     Dates: start: 20180613, end: 20180629
  15. METOPROLOL                         /00376902/ [Concomitant]
     Active Substance: METOPROLOL TARTRATE
     Indication: HYPERTENSION
     Route: 065
  16. FUROSEMIDE. [Concomitant]
     Active Substance: FUROSEMIDE
     Indication: POLYURIA
     Dosage: 40 MG, QD
     Route: 042
     Dates: start: 20180611, end: 20180625

REACTIONS (3)
  - Toxicity to various agents [Unknown]
  - Bone marrow failure [Unknown]
  - Prescribed overdose [Unknown]

NARRATIVE: CASE EVENT DATE: 20180622
